FAERS Safety Report 5689662-9 (Version None)
Quarter: 2008Q1

REPORT INFORMATION
  Report Type: 
  Country: None (occurrence: None)
  Receive Date: 20080328
  Receipt Date: 20080318
  Transmission Date: 20080703
  Serious: Yes (Death, Hospitalization, Other)
  Sender: FDA-Public Use
  Company Number: 234430K07USA

PATIENT
  Age: 74 Year
  Sex: Male
  Weight: 95.2554 kg

DRUGS (7)
  1. REBIF [Suspect]
     Indication: MULTIPLE SCLEROSIS
     Dosage: 44 MCG, 3 IN 1 WEEKS, SUBCUTANEOUS
     Route: 058
     Dates: start: 20040915, end: 20080125
  2. TOPROL-XL [Concomitant]
  3. AVANDAMET [Concomitant]
  4. LASIX (FUROSEMIDE /00032601/) [Concomitant]
  5. BACLOFEN [Concomitant]
  6. NEURONTIN [Concomitant]
  7. COUMADIN [Concomitant]

REACTIONS (8)
  - ANAEMIA [None]
  - ANGIOPATHY [None]
  - ASTHENIA [None]
  - ATRIAL FIBRILLATION [None]
  - FALL [None]
  - HIP FRACTURE [None]
  - INJECTION SITE BRUISING [None]
  - NASOPHARYNGITIS [None]
